FAERS Safety Report 15783106 (Version 1)
Quarter: 2019Q1

REPORT INFORMATION
  Report Type: Spontaneous
  Country: US (occurrence: US)
  Receive Date: 20190102
  Receipt Date: 20190102
  Transmission Date: 20190417
  Serious: Yes (Other)
  Sender: FDA-Public Use
  Company Number: US-PFIZER INC-2019000246

PATIENT
  Age: 73 Year
  Sex: Female
  Weight: 74.84 kg

DRUGS (1)
  1. TOVIAZ [Suspect]
     Active Substance: FESOTERODINE FUMARATE
     Indication: HYPERTONIC BLADDER
     Dosage: 4 MG, 1X/DAY
     Route: 048
     Dates: start: 2011

REACTIONS (9)
  - Arthropathy [Unknown]
  - Procedural pain [Not Recovered/Not Resolved]
  - Tendonitis [Unknown]
  - Swelling [Unknown]
  - Ligament rupture [Unknown]
  - Osteoporosis [Unknown]
  - Weight decreased [Unknown]
  - Inflammation [Unknown]
  - Bursitis [Unknown]

NARRATIVE: CASE EVENT DATE: 2016
